FAERS Safety Report 10993594 (Version 2)
Quarter: 2015Q2

REPORT INFORMATION
  Report Type: Report from Study
  Country: JP (occurrence: None)
  Receive Date: 20150403
  Receipt Date: 20150604
  Transmission Date: 20150821
  Serious: Yes (Hospitalization)
  Sender: FDA-Public Use
  Company Number: 2014MPI01322

PATIENT
  Age: 65 Year
  Sex: Male
  Weight: 67 kg

DRUGS (3)
  1. ADCETRIS [Suspect]
     Active Substance: BRENTUXIMAB VEDOTIN
     Indication: HODGKIN^S DISEASE
     Route: 041
     Dates: start: 20140513
  2. BAKTAR (SULFAMETHOXAZOLE, TRIMETHOPRIM) TABLET [Concomitant]
     Active Substance: SULFAMETHOXAZOLE\TRIMETHOPRIM
  3. VENILON (IMMUNOGLOBULIN HUMAN NORMAL) INJECTION [Concomitant]

REACTIONS (6)
  - Femoral neck fracture [None]
  - Neutropenia [None]
  - Fall [None]
  - Peripheral sensory neuropathy [None]
  - Febrile neutropenia [None]
  - Peripheral motor neuropathy [None]

NARRATIVE: CASE EVENT DATE: 20140322
